FAERS Safety Report 4786370-3 (Version None)
Quarter: 2005Q3

REPORT INFORMATION
  Report Type: 
  Country: None (occurrence: None)
  Receive Date: 20050927
  Receipt Date: 20050817
  Transmission Date: 20060218
  Serious: No
  Sender: FDA-Public Use
  Company Number: USA0508105703

PATIENT
  Age: 62 Year
  Sex: Female
  Weight: 75 kg

DRUGS (7)
  1. STRATTERA [Suspect]
     Indication: ATTENTION DEFICIT/HYPERACTIVITY DISORDER
     Dosage: 40 MG
     Dates: start: 20050812, end: 20050815
  2. PAXIL [Concomitant]
  3. DIOVAN [Concomitant]
  4. ZYRTEC [Concomitant]
  5. NEXIUM [Concomitant]
  6. ASTELIN [Concomitant]
  7. PRAVACHOL [Concomitant]

REACTIONS (3)
  - FEELING JITTERY [None]
  - HEADACHE [None]
  - MIDDLE INSOMNIA [None]
